FAERS Safety Report 6540373-7 (Version None)
Quarter: 2010Q1

REPORT INFORMATION
  Report Type: 
  Country: None (occurrence: None)
  Receive Date: 20100115
  Receipt Date: 20100106
  Transmission Date: 20100710
  Serious: Yes (Other)
  Sender: FDA-Public Use
  Company Number: JP-MERCK-0912USA00398

PATIENT
  Age: 61 Year
  Sex: Male

DRUGS (4)
  1. PEPCID [Suspect]
     Route: 048
     Dates: start: 20080101
  2. CEFDINIR [Suspect]
     Indication: PYREXIA
     Route: 048
     Dates: start: 20080419
  3. PREDNISOLONE [Concomitant]
     Route: 048
     Dates: start: 20080101, end: 20080101
  4. ZONISAMIDE [Concomitant]
     Indication: CEREBRAL HAEMORRHAGE
     Route: 048
     Dates: start: 20080101

REACTIONS (2)
  - DRUG RASH WITH EOSINOPHILIA AND SYSTEMIC SYMPTOMS [None]
  - STEVENS-JOHNSON SYNDROME [None]
